FAERS Safety Report 18963236 (Version 1)
Quarter: 2021Q1

REPORT INFORMATION
  Report Type: Spontaneous
  Country: US (occurrence: US)
  Receive Date: 20210303
  Receipt Date: 20210303
  Transmission Date: 20210420
  Serious: No
  Sender: FDA-Public Use
  Company Number: US-BAYER-2021-091296

PATIENT
  Age: 61 Year
  Sex: Female

DRUGS (2)
  1. CLIMARA [Suspect]
     Active Substance: ESTRADIOL
     Dosage: UNK
     Route: 062
  2. CLIMARA [Suspect]
     Active Substance: ESTRADIOL
     Dosage: UNK
     Route: 062

REACTIONS (6)
  - Malaise [None]
  - Hyperhidrosis [None]
  - Incorrect dose administered by product [None]
  - Adverse drug reaction [None]
  - Hot flush [None]
  - Product adhesion issue [None]
